FAERS Safety Report 8224044-7 (Version None)
Quarter: 2012Q1

REPORT INFORMATION
  Report Type: 
  Country: None (occurrence: None)
  Receive Date: 20120321
  Receipt Date: 20120313
  Transmission Date: 20120608
  Serious: Yes (Other)
  Sender: FDA-Public Use
  Company Number: DE-UCBSA-034713

PATIENT
  Age: 71 Year
  Sex: Female
  Weight: 64 kg

DRUGS (8)
  1. SPIRONOLACTONE [Concomitant]
     Indication: HYPERTENSION
     Route: 048
     Dates: start: 20070101
  2. ATACAND [Suspect]
     Indication: HYPERTENSION
     Dosage: UNKNOWN DOSE
     Route: 048
     Dates: end: 20120101
  3. FALITHROM [Concomitant]
     Indication: ATRIAL FIBRILLATION
     Route: 048
     Dates: start: 19890101
  4. LEVOTHYROXINE SODIUM [Concomitant]
     Indication: HYPERTHYROIDISM
     Route: 048
     Dates: start: 20040101
  5. DIGITOXIN INJ [Concomitant]
     Indication: ATRIAL FIBRILLATION
     Dosage: SINGLE DOSE : 0.07 (UNIT UNSPECIFIED) ONCE A DAY
     Route: 048
     Dates: start: 19890101
  6. KEPPRA [Suspect]
     Indication: EPILEPSY
     Dosage: FREQUENCY : 2 1/4
     Route: 048
     Dates: start: 20090703
  7. SIMVASTATIN [Concomitant]
     Indication: CORONARY ARTERY DISEASE
     Route: 048
     Dates: start: 20070101
  8. METOPROLOL SUCCINATE [Concomitant]
     Indication: HYPERTENSION
     Dosage: SINGLE DOSE : 23.75 (UNIT UNSPECIFIED) ONCE A DAY
     Route: 048
     Dates: start: 19940101

REACTIONS (2)
  - DYSKINESIA [None]
  - MUSCLE SPASMS [None]
